FAERS Safety Report 7785540-X (Version None)
Quarter: 2011Q3

REPORT INFORMATION
  Report Type: 
  Country: None (occurrence: None)
  Receive Date: 20110929
  Receipt Date: 20110918
  Transmission Date: 20111222
  Serious: No
  Sender: FDA-Public Use
  Company Number: US-B.I. PHARMACEUTICALS,INC./RIDGEFIELD-2011-BP-22420BP

PATIENT
  Sex: Female

DRUGS (5)
  1. ADVAIR DISKUS 100/50 [Concomitant]
     Indication: DYSPNOEA
  2. VALIUM [Concomitant]
     Dosage: 10 MG
     Route: 048
  3. SINGULAIR [Concomitant]
     Indication: DYSPNOEA
  4. SPIRIVA [Suspect]
     Indication: CHRONIC OBSTRUCTIVE PULMONARY DISEASE
     Dosage: 18 MCG
     Route: 055
     Dates: start: 20060101
  5. ENABLEX [Concomitant]
     Indication: BLADDER DISORDER

REACTIONS (2)
  - RESPIRATORY RATE INCREASED [None]
  - DYSPNOEA [None]
